FAERS Safety Report 16474209 (Version 1)
Quarter: 2019Q3

REPORT INFORMATION
  Report Type: Spontaneous
  Country: US (occurrence: US)
  Receive Date: 20190624
  Receipt Date: 20190624
  Transmission Date: 20191004
  Serious: No
  Sender: FDA-Public Use
  Company Number: None

PATIENT
  Age: 76 Year
  Sex: Female
  Weight: 81 kg

DRUGS (6)
  1. EZETIMIBE 10 MG [Suspect]
     Active Substance: EZETIMIBE
     Indication: BLOOD TRIGLYCERIDES INCREASED
     Dosage: ?          QUANTITY:1 TABLET(S);OTHER FREQUENCY:3X A WEEK;?
     Route: 048
     Dates: start: 20190514, end: 20190620
  2. ROSUVASTATIN. [Concomitant]
     Active Substance: ROSUVASTATIN
  3. CVS WOMEN^S FORMULA MULTIVITAMIN [Concomitant]
  4. BIOTIN [Concomitant]
     Active Substance: BIOTIN
  5. PRESERVISION ARDS2 [Concomitant]
  6. TURMERIC COMPLEX [Concomitant]

REACTIONS (11)
  - Dyspepsia [None]
  - Constipation [None]
  - Abdominal distension [None]
  - Flank pain [None]
  - Fatigue [None]
  - Chills [None]
  - Eructation [None]
  - Muscle spasms [None]
  - Abdominal pain [None]
  - Back pain [None]
  - Abdominal pain upper [None]

NARRATIVE: CASE EVENT DATE: 20190601
